FAERS Safety Report 7453723-4 (Version None)
Quarter: 2011Q2

REPORT INFORMATION
  Report Type: 
  Country: None (occurrence: None)
  Receive Date: 20110502
  Receipt Date: 20110112
  Transmission Date: 20111010
  Serious: No
  Sender: FDA-Public Use
  Company Number: US-ASTRAZENECA-2011SE02235

PATIENT
  Sex: Male

DRUGS (3)
  1. XANAX [Concomitant]
  2. NEXIUM [Suspect]
     Route: 048
  3. ODC-FISH OIL [Concomitant]

REACTIONS (2)
  - ABDOMINAL PAIN [None]
  - DRUG DOSE OMISSION [None]
